FAERS Safety Report 6222301-7 (Version None)
Quarter: 2009Q2

REPORT INFORMATION
  Report Type: 
  Country: None (occurrence: None)
  Receive Date: 20090611
  Receipt Date: 20090602
  Transmission Date: 20091009
  Serious: Yes (Other)
  Sender: FDA-Public Use
  Company Number: PHEH2009US05658

PATIENT
  Sex: Female

DRUGS (8)
  1. RECLAST [Suspect]
     Dosage: UNK
     Dates: start: 20090506
  2. DILAUDID [Concomitant]
     Dosage: 4 MG 5 TIMES DAILY
  3. CALCIUM LIQUID GELS [Concomitant]
     Dosage: 1200 MG PER DAY
  4. ACIPHEX [Concomitant]
     Dosage: 20 MG, BID
  5. LIPITOR [Concomitant]
     Dosage: 10 MG, QD
  6. LORAZEPAM [Concomitant]
     Dosage: 1 MG, TID
  7. AMBIEN CR [Concomitant]
     Dosage: 12.5 MG, QD
  8. FENTANYL [Concomitant]
     Dosage: 25 MCG/HR EVERY 3 DAYS

REACTIONS (3)
  - ACTIVITIES OF DAILY LIVING IMPAIRED [None]
  - NAUSEA [None]
  - ORAL PAIN [None]
